FAERS Safety Report 14560234 (Version 2)
Quarter: 2018Q1

REPORT INFORMATION
  Report Type: Report from Study
  Country: BR (occurrence: BR)
  Receive Date: 20180222
  Receipt Date: 20180309
  Transmission Date: 20180509
  Serious: Yes (Other)
  Sender: FDA-Public Use
  Company Number: BR-ROCHE-2076170

PATIENT
  Sex: Female
  Weight: 63 kg

DRUGS (2)
  1. XOLAIR [Suspect]
     Active Substance: OMALIZUMAB
     Route: 058
     Dates: start: 20180215, end: 20180215
  2. XOLAIR [Suspect]
     Active Substance: OMALIZUMAB
     Indication: URTICARIA CHRONIC
     Route: 058
     Dates: end: 201603

REACTIONS (9)
  - Throat tightness [Unknown]
  - Eyelid oedema [Recovered/Resolved]
  - Viral infection [Recovering/Resolving]
  - Lip swelling [Unknown]
  - Pharyngeal oedema [Unknown]
  - Mouth swelling [Unknown]
  - Pruritus [Unknown]
  - Urticaria [Unknown]
  - Eye swelling [Unknown]
